FAERS Safety Report 22035339 (Version 1)
Quarter: 2023Q1

REPORT INFORMATION
  Report Type: Spontaneous
  Country: CA (occurrence: CA)
  Receive Date: 20230224
  Receipt Date: 20230224
  Transmission Date: 20230418
  Serious: Yes (Other)
  Sender: FDA-Public Use
  Company Number: CA-TEVA-2022-CA-2049252

PATIENT
  Age: 71 Year
  Sex: Male

DRUGS (5)
  1. DOXORUBICIN HYDROCHLORIDE [Suspect]
     Active Substance: DOXORUBICIN HYDROCHLORIDE
     Indication: Transcatheter arterial chemoembolisation
     Route: 013
  2. LIPIODOL ULTRA-FLUIDE [Suspect]
     Active Substance: ETHIODIZED OIL
     Indication: Transcatheter arterial chemoembolisation
     Dosage: 8 ML DAILY;
     Route: 013
  3. GELFOAM [Suspect]
     Active Substance: GELATIN\THROMBIN HUMAN
     Indication: Product used for unknown indication
     Route: 065
  4. GELATIN SPONGE, ABSORBABLE [Suspect]
     Active Substance: GELATIN
     Indication: Product used for unknown indication
     Route: 065
  5. ETHIODIZED OIL [Suspect]
     Active Substance: ETHIODIZED OIL
     Indication: Transcatheter arterial chemoembolisation
     Dosage: 8 ML DAILY;
     Route: 013

REACTIONS (2)
  - Embolism [Recovered/Resolved with Sequelae]
  - Skin injury [Recovered/Resolved with Sequelae]
